FAERS Safety Report 7760348-X (Version None)
Quarter: 2011Q3

REPORT INFORMATION
  Report Type: 
  Country: None (occurrence: None)
  Receive Date: 20110919
  Receipt Date: 20110914
  Transmission Date: 20111222
  Serious: Yes (Other)
  Sender: FDA-Public Use
  Company Number: US-BAYER-200935233NA

PATIENT
  Age: 44 Year
  Sex: Male

DRUGS (3)
  1. BETASERON [Suspect]
     Route: 058
     Dates: start: 20041218, end: 20081024
  2. BETASERON [Suspect]
     Indication: MULTIPLE SCLEROSIS
     Route: 058
     Dates: start: 20011031, end: 20041001
  3. BETASERON [Suspect]
     Route: 058
     Dates: start: 20081218

REACTIONS (5)
  - HEMIPARESIS [None]
  - INFLUENZA LIKE ILLNESS [None]
  - CONTUSION [None]
  - PYREXIA [None]
  - ROAD TRAFFIC ACCIDENT [None]
